FAERS Safety Report 5125755-2 (Version None)
Quarter: 2006Q4

REPORT INFORMATION
  Report Type: 
  Country: None (occurrence: None)
  Receive Date: 20061012
  Receipt Date: 20061006
  Transmission Date: 20070319
  Serious: Yes (Hospitalization)
  Sender: FDA-Public Use
  Company Number: 2006-00898FE

PATIENT
  Age: 3 Year
  Sex: Male

DRUGS (4)
  1. MINIRIN [Suspect]
     Indication: DIABETES INSIPIDUS
     Dosage: DOSE: 3 TBL
     Route: 048
  2. HYDROCORTISONE [Suspect]
     Indication: HYPOPITUITARISM
     Route: 048
  3. SOMATROPIN [Suspect]
     Indication: HYPOPITUITARISM
     Route: 058
     Dates: start: 20051108, end: 20060721
  4. LEVOTHYROXINE SODIUM [Suspect]
     Indication: HYPOPITUITARISM
     Route: 048

REACTIONS (4)
  - AMAUROSIS [None]
  - FALL [None]
  - PITUITARY TUMOUR RECURRENT [None]
  - STRABISMUS [None]
